FAERS Safety Report 7086593-7 (Version None)
Quarter: 2010Q4

REPORT INFORMATION
  Report Type: 
  Country: None (occurrence: None)
  Receive Date: 20101105
  Receipt Date: 20101101
  Transmission Date: 20110411
  Serious: Yes (Death, Life-Threatening, Hospitalization, Disabling)
  Sender: FDA-Public Use
  Company Number: PHHO2010MX08193

PATIENT
  Sex: Female
  Weight: 48 kg

DRUGS (3)
  1. AFINITOR [Suspect]
     Indication: BREAST CANCER METASTATIC
     Dosage: UNK
     Route: 048
     Dates: start: 20100519, end: 20100529
  2. TRASTUZUMAB [Concomitant]
     Indication: BREAST CANCER METASTATIC
     Dosage: 120 MG, DAILY
     Route: 042
     Dates: start: 20100519, end: 20100529
  3. PACLITAXEL [Concomitant]
     Indication: BREAST CANCER METASTATIC
     Dosage: 192 MG, DAILY
     Route: 042
     Dates: start: 20100519, end: 20100526

REACTIONS (8)
  - ACUTE RESPIRATORY FAILURE [None]
  - CEREBRAL ISCHAEMIA [None]
  - CEREBROVASCULAR ACCIDENT [None]
  - EPISTAXIS [None]
  - HEMIPLEGIA [None]
  - HYPOVOLAEMIA [None]
  - HYPOVOLAEMIC SHOCK [None]
  - THROMBOCYTOPENIA [None]
